FAERS Safety Report 14825793 (Version 1)
Quarter: 2018Q2

REPORT INFORMATION
  Report Type: Report from Study
  Country: CA (occurrence: CA)
  Receive Date: 20180430
  Receipt Date: 20180430
  Transmission Date: 20180711
  Serious: Yes (Death, Other)
  Sender: FDA-Public Use
  Company Number: CA-ROCHE-1821704

PATIENT

DRUGS (6)
  1. REOVIRUS (PELAREOREP) [Suspect]
     Active Substance: PELAREOREP
     Indication: COLORECTAL CANCER METASTATIC
     Dosage: 50 WAS ADMINISTERED INTRAVENOUSLY OVER 1 HOUR ON DAYS 1 TO 5 DURING CYCLES 1, 2, 4, AND ALTERNATE CY
     Route: 042
  2. OXALIPLATIN. [Suspect]
     Active Substance: OXALIPLATIN
     Indication: COLORECTAL CANCER METASTATIC
     Route: 065
  3. FLUOROURACIL. [Suspect]
     Active Substance: FLUOROURACIL
     Route: 042
  4. FLUOROURACIL. [Suspect]
     Active Substance: FLUOROURACIL
     Indication: COLORECTAL CANCER METASTATIC
     Dosage: BOLUS
     Route: 042
  5. BEVACIZUMAB. [Suspect]
     Active Substance: BEVACIZUMAB
     Indication: COLORECTAL CANCER METASTATIC
     Route: 065
  6. FOLINIC ACID [Suspect]
     Active Substance: LEUCOVORIN
     Indication: COLORECTAL CANCER METASTATIC
     Route: 065

REACTIONS (18)
  - Death [Fatal]
  - Hypertension [Unknown]
  - Fatigue [Unknown]
  - Sepsis [Unknown]
  - Hypoalbuminaemia [Unknown]
  - Peripheral sensory neuropathy [Unknown]
  - Vomiting [Unknown]
  - Embolism [Unknown]
  - Nephrotic syndrome [Unknown]
  - Febrile neutropenia [Unknown]
  - Diarrhoea [Unknown]
  - Hyperglycaemia [Unknown]
  - Abdominal pain [Unknown]
  - Lung infection [Unknown]
  - Neutropenia [Unknown]
  - Acute kidney injury [Unknown]
  - Proteinuria [Unknown]
  - Syncope [Unknown]
